FAERS Safety Report 7568339-9 (Version None)
Quarter: 2011Q2

REPORT INFORMATION
  Report Type: 
  Country: None (occurrence: None)
  Receive Date: 20110623
  Receipt Date: 20110617
  Transmission Date: 20111010
  Serious: Yes (Other)
  Sender: FDA-Public Use
  Company Number: A0924396A

PATIENT
  Age: 83 Year
  Sex: Female

DRUGS (8)
  1. FERROUS SULFATE TAB [Concomitant]
  2. HYDROCODONE [Concomitant]
  3. NORVASC [Concomitant]
  4. ADVAIR DISKUS 100/50 [Suspect]
     Indication: CHRONIC OBSTRUCTIVE PULMONARY DISEASE
     Dosage: 1PUFF TWICE PER DAY
     Route: 055
     Dates: start: 20040101
  5. TRAZODONE HCL [Concomitant]
  6. AMLODIPINE [Concomitant]
  7. PROVENTIL [Concomitant]
  8. ASPIRIN [Concomitant]

REACTIONS (9)
  - VOMITING [None]
  - CHOKING [None]
  - STOMATITIS [None]
  - THROAT TIGHTNESS [None]
  - FEAR [None]
  - THERMAL BURN [None]
  - COUGH [None]
  - DYSPNOEA [None]
  - PRODUCT QUALITY ISSUE [None]
